FAERS Safety Report 8145295-6 (Version None)
Quarter: 2012Q1

REPORT INFORMATION
  Report Type: 
  Country: None (occurrence: None)
  Receive Date: 20120214
  Receipt Date: 20120201
  Transmission Date: 20120608
  Serious: Yes (Death)
  Sender: FDA-Public Use
  Company Number: KAD201202-000130

PATIENT
  Sex: Female
  Weight: 78.4723 kg

DRUGS (14)
  1. INCIVEK [Suspect]
     Dosage: 375 MG, 2 CAPSULES, ORAL
     Route: 048
     Dates: start: 20111201, end: 20120101
  2. LORAZEPAM [Concomitant]
  3. ASCORBIC ACID [Concomitant]
  4. PEGASYS [Suspect]
     Dosage: 180 MCG SUBCUTANEOUS, WEEKLY
     Route: 058
     Dates: start: 20111112, end: 20120101
  5. PXYCODONE [Concomitant]
  6. STEROID INJECTION [Concomitant]
  7. VITAMIN B-12 [Concomitant]
  8. MORPHINE [Concomitant]
  9. VITAMIN E [Concomitant]
  10. MILK THISTLE [Concomitant]
  11. LEVOTHYROXINE SODIUM [Concomitant]
  12. RANITIDINE [Concomitant]
  13. FOLIC ACID [Concomitant]
  14. RIBAVIRIN [Suspect]
     Dosage: 600 MG AM AND 400 MG PM, ORAL
     Route: 048
     Dates: start: 20111112, end: 20120101

REACTIONS (2)
  - THROMBOSIS [None]
  - MYOCARDIAL INFARCTION [None]
